FAERS Safety Report 15597275 (Version 1)
Quarter: 2018Q4

REPORT INFORMATION
  Report Type: Spontaneous
  Country: US (occurrence: US)
  Receive Date: 20181108
  Receipt Date: 20181108
  Transmission Date: 20190205
  Serious: Yes (Other)
  Sender: FDA-Public Use
  Company Number: None

PATIENT
  Age: 32 Year
  Sex: Female
  Weight: 71.55 kg

DRUGS (4)
  1. CHLORDIAZEPOXIDE 10MG CAPSULES [Suspect]
     Active Substance: CHLORDIAZEPOXIDE
     Indication: ANXIETY
     Dosage: ?          QUANTITY:1 CAPSULE(S);?
     Route: 048
     Dates: start: 20181030, end: 20181031
  2. CHLORDIAZEPOXIDE 10MG CAPSULES [Suspect]
     Active Substance: CHLORDIAZEPOXIDE
     Indication: INSOMNIA
     Dosage: ?          QUANTITY:1 CAPSULE(S);?
     Route: 048
     Dates: start: 20181030, end: 20181031
  3. CHLORDIAZEPOXIDE 10MG CAPSULES [Suspect]
     Active Substance: CHLORDIAZEPOXIDE
     Indication: MUSCLE SPASMS
     Dosage: ?          QUANTITY:1 CAPSULE(S);?
     Route: 048
     Dates: start: 20181030, end: 20181031
  4. SUBOXONE/NALOXONE [Concomitant]

REACTIONS (6)
  - Hypersomnia [None]
  - Eye swelling [None]
  - Swelling face [None]
  - Migraine [None]
  - Somnolence [None]
  - Feeling abnormal [None]

NARRATIVE: CASE EVENT DATE: 20181030
